FAERS Safety Report 15107913 (Version 1)
Quarter: 2018Q3

REPORT INFORMATION
  Report Type: Spontaneous
  Country: US (occurrence: US)
  Receive Date: 20180704
  Receipt Date: 20180704
  Transmission Date: 20181010
  Serious: No
  Sender: FDA-Public Use
  Company Number: US-SHIRE-US201823643

PATIENT
  Age: 48 Year
  Weight: 145.13 kg

DRUGS (1)
  1. NATPARA (PARATHYROID HORMONE) [Suspect]
     Active Substance: PARATHYROID HORMONE
     Indication: HYPOPARATHYROIDISM
     Dosage: UNK
     Route: 065
     Dates: end: 20180614

REACTIONS (2)
  - Conjunctivitis [Unknown]
  - Muscle strain [Unknown]

NARRATIVE: CASE EVENT DATE: 20180614
